FAERS Safety Report 4654724-1 (Version None)
Quarter: 2005Q2

REPORT INFORMATION
  Report Type: 
  Country: None (occurrence: None)
  Receive Date: 20050506
  Receipt Date: 20050406
  Transmission Date: 20051028
  Serious: Yes (Death, Hospitalization, Other)
  Sender: FDA-Public Use
  Company Number: 200512864US

PATIENT
  Age: 80 Year
  Sex: Female

DRUGS (1)
  1. LOVENOX [Suspect]
     Indication: ATRIAL FIBRILLATION
     Dosage: DOSE: UNK

REACTIONS (3)
  - ABDOMINAL HAEMATOMA [None]
  - DEATH [None]
  - HAEMATOMA [None]
